FAERS Safety Report 5588500-2 (Version None)
Quarter: 2008Q1

REPORT INFORMATION
  Report Type: 
  Country: None (occurrence: None)
  Receive Date: 20080111
  Receipt Date: 20080110
  Transmission Date: 20080703
  Serious: Yes (Death)
  Sender: FDA-Public Use
  Company Number: US-ASTRAZENECA-2008AC00126

PATIENT
  Age: 51 Year
  Sex: Female

DRUGS (4)
  1. QUETIAPINE [Suspect]
     Route: 048
  2. HYDROCODONE [Suspect]
     Route: 048
  3. HALOPERIDOL [Suspect]
     Route: 048
  4. METHAMPHETAMINE HYDROCHLORIDE [Suspect]
     Route: 048

REACTIONS (1)
  - DEATH [None]
